FAERS Safety Report 13609784 (Version 1)
Quarter: 2017Q2

REPORT INFORMATION
  Report Type: Spontaneous
  Country: US (occurrence: US)
  Receive Date: 20170602
  Receipt Date: 20170602
  Transmission Date: 20170830
  Serious: No
  Sender: FDA-Public Use
  Company Number: US-PFIZER INC-3151052

PATIENT
  Sex: Female

DRUGS (1)
  1. CYTARABINE. [Suspect]
     Active Substance: CYTARABINE
     Indication: PRODUCT USED FOR UNKNOWN INDICATION
     Dosage: UNK

REACTIONS (6)
  - Eye irritation [Unknown]
  - Throat irritation [Not Recovered/Not Resolved]
  - Product preparation error [Unknown]
  - Exposure via inhalation [Unknown]
  - Eye pruritus [Unknown]
  - Oropharyngeal pain [Not Recovered/Not Resolved]
